FAERS Safety Report 21174205 (Version 1)
Quarter: 2022Q3

REPORT INFORMATION
  Report Type: Spontaneous
  Country: US (occurrence: US)
  Receive Date: 20220804
  Receipt Date: 20220804
  Transmission Date: 20221026
  Serious: No
  Sender: FDA-Public Use
  Company Number: US-Amarin Pharma, Inc.-2022AMR001060

PATIENT
  Age: 65 Year
  Sex: Female
  Weight: 83.91 kg

DRUGS (5)
  1. VASCEPA [Suspect]
     Active Substance: ICOSAPENT ETHYL
     Indication: Cardiovascular event prophylaxis
     Route: 048
     Dates: start: 2015
  2. ROSUVASTATIN [Concomitant]
     Active Substance: ROSUVASTATIN
     Indication: Product used for unknown indication
     Dosage: 20 OR 25 MILLIGRAMS DAILY
     Dates: start: 2017
  3. ASPIRIN [Concomitant]
     Active Substance: ASPIRIN
     Indication: Product used for unknown indication
  4. COENZYME Q10 [Concomitant]
     Active Substance: DIETARY SUPPLEMENT\UBIDECARENONE
     Indication: Product used for unknown indication
  5. LEVOTHYROXINE [Concomitant]
     Active Substance: LEVOTHYROXINE
     Indication: Hypothyroidism
     Dates: start: 1992

REACTIONS (9)
  - Knee arthroplasty [Unknown]
  - Retching [Unknown]
  - Weight increased [Unknown]
  - Blood pressure increased [Unknown]
  - Product physical issue [Unknown]
  - Product leakage [Unknown]
  - Product odour abnormal [Unknown]
  - Product physical issue [Unknown]
  - Product physical issue [Unknown]

NARRATIVE: CASE EVENT DATE: 20170101
